FAERS Safety Report 8228737 (Version 2)
Quarter: 2013Q2

REPORT INFORMATION
  Report Type: Spontaneous
  Country: None (occurrence: None)
  Receive Date: 20111027
  Receipt Date: 20130619
  Transmission Date: 20140414
  Serious: No
  Sender: FDA-Public Use
  Company Number: 2135225-2011-00101

PATIENT
  Age: 59 Year
  Sex: Female

DRUGS (2)
  1. AETHOXYSKLEROL [Suspect]
     Indication: SCLEROTHERAPY
     Dosage: INTRAARTERIAL 2X1.5ML?
     Route: 013
  2. AETHOXYSKLEROL [Suspect]
     Indication: VARICOSE VEIN
     Dosage: INTRAARTERIAL 2X1.5ML?
     Route: 013

REACTIONS (12)
  - PERIPHERAL ARTERIAL REOCCLUSION [None]
  - DRUG INEFFECTIVE [None]
  - GANGRENE [None]
  - PALLOR [None]
  - Injection site pain [None]
  - Hypoaesthesia [None]
  - Movement disorder [None]
  - Cyanosis [None]
  - Oedema peripheral [None]
  - Foot amputation [None]
  - Osteomyelitis [None]
  - Peripheral ischaemia [None]
